FAERS Safety Report 8832133 (Version 1)
Quarter: 2012Q4

REPORT INFORMATION
  Report Type: 
  Country: US (occurrence: US)
  Receive Date: 20121009
  Receipt Date: 20121009
  Transmission Date: 20130627
  Serious: Yes (Hospitalization, Other)
  Sender: FDA-Public Use
  Company Number: US-ROCHE-1138236

PATIENT
  Age: 60 Year
  Sex: Female

DRUGS (3)
  1. RITUXAN [Suspect]
     Indication: B-CELL LYMPHOMA
     Route: 042
     Dates: start: 20120830
  2. RITUXAN [Suspect]
     Route: 065
     Dates: start: 20120925
  3. TREANDA [Concomitant]
     Indication: B-CELL LYMPHOMA
     Route: 065
     Dates: start: 20120830

REACTIONS (3)
  - Urinary tract infection [Recovered/Resolved]
  - Sepsis [Recovered/Resolved]
  - Paralysis [Unknown]
